FAERS Safety Report 7583389-4 (Version None)
Quarter: 2011Q2

REPORT INFORMATION
  Report Type: 
  Country: None (occurrence: None)
  Receive Date: 20110623
  Receipt Date: 20110608
  Transmission Date: 20111010
  Serious: Yes (Hospitalization)
  Sender: FDA-Public Use
  Company Number: 2011MA006329

PATIENT
  Age: 43 Year
  Sex: Female

DRUGS (5)
  1. ALPRAZOLAM [Concomitant]
  2. BUTALBITAL [Concomitant]
  3. VENLAFAXINE HYDROCHLORIDE [Suspect]
     Indication: DEPRESSION
     Dosage: 300 MG;OD
  4. CLONAZEPAM [Concomitant]
  5. PROPYPHENAZONE [Concomitant]

REACTIONS (18)
  - CONFUSIONAL STATE [None]
  - GAIT DISTURBANCE [None]
  - HYPOKALAEMIA [None]
  - PSYCHOMOTOR HYPERACTIVITY [None]
  - DEPRESSION [None]
  - WITHDRAWAL SYNDROME [None]
  - HALLUCINATION, VISUAL [None]
  - BLOOD CREATINE PHOSPHOKINASE INCREASED [None]
  - INSOMNIA [None]
  - CONVULSION [None]
  - DRUG SCREEN POSITIVE [None]
  - DELIRIUM [None]
  - HEADACHE [None]
  - MOVEMENT DISORDER [None]
  - BLOOD PRESSURE INCREASED [None]
  - DISORIENTATION [None]
  - SUICIDE ATTEMPT [None]
  - ABNORMAL BEHAVIOUR [None]
